FAERS Safety Report 5169198-4 (Version None)
Quarter: 2006Q4

REPORT INFORMATION
  Report Type: 
  Country: None (occurrence: None)
  Receive Date: 20061204
  Receipt Date: 20061102
  Transmission Date: 20070319
  Serious: Yes (Death, Other)
  Sender: FDA-Public Use
  Company Number: 2006140248

PATIENT
  Sex: Female

DRUGS (2)
  1. CELEBREX [Suspect]
     Dosage: ORAL
     Route: 048
     Dates: start: 20000201, end: 20040420
  2. VIOXX [Suspect]
     Dosage: ORAL
     Route: 048
     Dates: start: 19990101, end: 20040420

REACTIONS (4)
  - CARDIAC ARREST [None]
  - CEREBROVASCULAR ACCIDENT [None]
  - MYOCARDIAL INFARCTION [None]
  - TRANSIENT ISCHAEMIC ATTACK [None]
